FAERS Safety Report 12857359 (Version 1)
Quarter: 2016Q4

REPORT INFORMATION
  Report Type: Spontaneous
  Country: US (occurrence: US)
  Receive Date: 20161018
  Receipt Date: 20161018
  Transmission Date: 20170207
  Serious: Yes (Other)
  Sender: FDA-Public Use
  Company Number: US-LUNDBECK-DKLU2021035

PATIENT
  Sex: Female

DRUGS (2)
  1. ONFI [Suspect]
     Active Substance: CLOBAZAM
     Indication: COMPLEX PARTIAL SEIZURES
     Route: 065
  2. ONFI [Suspect]
     Active Substance: CLOBAZAM
     Indication: EPILEPSY

REACTIONS (1)
  - Seizure [Unknown]
